FAERS Safety Report 14718274 (Version 1)
Quarter: 2018Q2

REPORT INFORMATION
  Report Type: Spontaneous
  Country: US (occurrence: US)
  Receive Date: 20180404
  Receipt Date: 20180404
  Transmission Date: 20180711
  Serious: No
  Sender: FDA-Public Use
  Company Number: US-SA-2018SA075316

PATIENT
  Age: 24 Year
  Sex: Male

DRUGS (2)
  1. DUPIXENT [Suspect]
     Active Substance: DUPILUMAB
     Indication: DERMATITIS ATOPIC
     Route: 058
     Dates: start: 20170629, end: 20170629
  2. DUPIXENT [Suspect]
     Active Substance: DUPILUMAB
     Indication: DERMATITIS ATOPIC
     Route: 058

REACTIONS (6)
  - Erythema [Unknown]
  - Blister [Unknown]
  - Burning sensation [Unknown]
  - Skin exfoliation [Unknown]
  - Eye swelling [Unknown]
  - Secretion discharge [Unknown]

NARRATIVE: CASE EVENT DATE: 201712
